FAERS Safety Report 5106787-7 (Version None)
Quarter: 2006Q3

REPORT INFORMATION
  Report Type: 
  Country: None (occurrence: None)
  Receive Date: 20060731
  Receipt Date: 20051018
  Transmission Date: 20061208
  Serious: Yes (Death)
  Sender: FDA-Public Use
  Company Number: US-JNJFOC-20051000024

PATIENT
  Age: 90 Year
  Sex: Female

DRUGS (1)
  1. RISPERDAL [Suspect]
     Indication: DEMENTIA ALZHEIMER'S TYPE
     Dates: end: 20050927

REACTIONS (1)
  - CARDIAC ARREST [None]
